FAERS Safety Report 7350750-2 (Version None)
Quarter: 2011Q1

REPORT INFORMATION
  Report Type: 
  Country: None (occurrence: None)
  Receive Date: 20110303
  Receipt Date: 20110221
  Transmission Date: 20110831
  Serious: Yes (Other)
  Sender: FDA-Public Use
  Company Number: 028144

PATIENT
  Sex: Female

DRUGS (1)
  1. CERTOLIZUMAB PEGOL (CERTOLIZUMAB PEGOL) [Suspect]
     Indication: RHEUMATOID ARTHRITIS
     Dosage: (SUBCUTANEOUS)
     Route: 058

REACTIONS (9)
  - RASH [None]
  - HYPERSENSITIVITY [None]
  - HYPOAESTHESIA FACIAL [None]
  - DIARRHOEA [None]
  - SWELLING FACE [None]
  - NAUSEA [None]
  - VISUAL IMPAIRMENT [None]
  - HEARING IMPAIRED [None]
  - PSYCHOMOTOR HYPERACTIVITY [None]
